FAERS Safety Report 13260559 (Version 2)
Quarter: 2017Q2

REPORT INFORMATION
  Report Type: Spontaneous
  Country: US (occurrence: US)
  Receive Date: 20170222
  Receipt Date: 20170606
  Transmission Date: 20170830
  Serious: Yes (Other)
  Sender: FDA-Public Use
  Company Number: US-PFIZER INC-2017077216

PATIENT
  Age: 54 Year
  Sex: Female
  Weight: 88 kg

DRUGS (2)
  1. SOLU-CORTEF [Suspect]
     Active Substance: HYDROCORTISONE SODIUM SUCCINATE
     Indication: ADRENAL INSUFFICIENCY
     Dosage: 100 MG RECONSITUTED, DIFFERENT DOSES TO MIMIC THE CIRCADIAN RHYTHM
  2. SOLU-CORTEF [Suspect]
     Active Substance: HYDROCORTISONE SODIUM SUCCINATE
     Indication: SECONDARY ADRENOCORTICAL INSUFFICIENCY

REACTIONS (10)
  - Malaise [Not Recovered/Not Resolved]
  - Somnolence [Unknown]
  - Erythema [Not Recovered/Not Resolved]
  - Rash [Not Recovered/Not Resolved]
  - Tremor [Unknown]
  - Off label use [Not Recovered/Not Resolved]
  - Hyperaesthesia [Unknown]
  - Adrenocortical insufficiency acute [Unknown]
  - Infusion site erythema [Not Recovered/Not Resolved]
  - Pruritus [Not Recovered/Not Resolved]

NARRATIVE: CASE EVENT DATE: 20161208
